FAERS Safety Report 6978004-4 (Version None)
Quarter: 2010Q3

REPORT INFORMATION
  Report Type: 
  Country: None (occurrence: None)
  Receive Date: 20100913
  Receipt Date: 20100903
  Transmission Date: 20110219
  Serious: Yes (Other)
  Sender: FDA-Public Use
  Company Number: US-PFIZER INC-2010058733

PATIENT
  Sex: Female
  Weight: 70.295 kg

DRUGS (8)
  1. CHANTIX [Suspect]
     Indication: SMOKING CESSATION THERAPY
     Dosage: 0.5 MG, 1X/DAY
     Route: 048
     Dates: start: 20090101, end: 20090101
  2. CHANTIX [Suspect]
     Dosage: 1 MG, 1X/DAY
     Route: 048
     Dates: start: 20100504
  3. PROZAC [Concomitant]
     Dates: end: 20100101
  4. FEMARA [Concomitant]
     Indication: BREAST CANCER
     Dosage: UNK
  5. PROMETRIUM [Concomitant]
     Dosage: 100MG DAILY
  6. VITAMIN D3 [Concomitant]
     Dosage: 500 UNITS DAILY
  7. CALCIUM [Concomitant]
     Dosage: 1500MG DAILY
  8. FISH OIL [Concomitant]
     Dosage: 2000MG DAILY

REACTIONS (6)
  - DEPRESSION [None]
  - FEELING ABNORMAL [None]
  - HOT FLUSH [None]
  - NAUSEA [None]
  - NIGHT SWEATS [None]
  - RESTLESS LEGS SYNDROME [None]
